FAERS Safety Report 13869309 (Version 5)
Quarter: 2018Q1

REPORT INFORMATION
  Report Type: Report from Study
  Country: IL (occurrence: IL)
  Receive Date: 20170815
  Receipt Date: 20180222
  Transmission Date: 20180508
  Serious: Yes (Hospitalization, Disabling, Other)
  Sender: FDA-Public Use
  Company Number: IL-INCYTE CORPORATION-2017IN002843

PATIENT

DRUGS (4)
  1. JAKAVI [Suspect]
     Active Substance: RUXOLITINIB
     Dosage: 5 MG, BID
     Route: 048
  2. JAKAVI [Suspect]
     Active Substance: RUXOLITINIB
     Dosage: 10 MG, BID
     Route: 048
     Dates: start: 20170406
  3. JAKAVI [Suspect]
     Active Substance: RUXOLITINIB
     Indication: MYELOFIBROSIS
     Dosage: 10 MG, BID
     Route: 048
     Dates: start: 20170328, end: 20170328
  4. JAKAVI [Suspect]
     Active Substance: RUXOLITINIB
     Dosage: 5 MG, BID
     Route: 048

REACTIONS (14)
  - Abdominal pain upper [Recovered/Resolved]
  - Asthenia [Not Recovered/Not Resolved]
  - Sleep disorder [Unknown]
  - Metastases to oesophagus [Unknown]
  - Benign gastric neoplasm [Not Recovered/Not Resolved]
  - Vomiting [Unknown]
  - Device dislocation [Recovered/Resolved]
  - Oesophageal stenosis [Not Recovered/Not Resolved]
  - Haemoglobin decreased [Unknown]
  - Dysphagia [Not Recovered/Not Resolved]
  - Metastases to liver [Not Recovered/Not Resolved]
  - Metastatic gastric cancer [Recovering/Resolving]
  - Skin test positive [Unknown]
  - Nasopharyngitis [Not Recovered/Not Resolved]

NARRATIVE: CASE EVENT DATE: 20170328
